FAERS Safety Report 15095165 (Version 1)
Quarter: 2018Q3

REPORT INFORMATION
  Report Type: Spontaneous
  Country: US (occurrence: US)
  Receive Date: 20180702
  Receipt Date: 20180702
  Transmission Date: 20181010
  Serious: No
  Sender: FDA-Public Use
  Company Number: US-009507513-1806USA011641

PATIENT
  Age: 25 Year
  Sex: Female
  Weight: 72.56 kg

DRUGS (3)
  1. SERTRALINE HYDROCHLORIDE. [Concomitant]
     Active Substance: SERTRALINE HYDROCHLORIDE
  2. TRAZODONE HYDROCHLORIDE. [Concomitant]
     Active Substance: TRAZODONE HYDROCHLORIDE
     Dosage: UNK
  3. NEXPLANON [Suspect]
     Active Substance: ETONOGESTREL
     Indication: CONTRACEPTION
     Dosage: 4 YEAR IMPLANT, IN LEFT ARM
     Dates: start: 20170715

REACTIONS (3)
  - Polymenorrhoea [Unknown]
  - Drug prescribing error [Unknown]
  - Anxiety [Unknown]

NARRATIVE: CASE EVENT DATE: 20170715
